FAERS Safety Report 24280634 (Version 1)
Quarter: 2024Q3

REPORT INFORMATION
  Report Type: Report from Study
  Country: US (occurrence: US)
  Receive Date: 20240904
  Receipt Date: 20240904
  Transmission Date: 20241017
  Serious: Yes (Death, Hospitalization)
  Sender: JOHNSON AND JOHNSON
  Company Number: US-JNJFOC-20240772875

PATIENT
  Age: 64 Year
  Sex: Male

DRUGS (6)
  1. ERLEADA [Suspect]
     Active Substance: APALUTAMIDE
     Indication: Prostate cancer
     Route: 048
     Dates: start: 20240625
  2. ERLEADA [Suspect]
     Active Substance: APALUTAMIDE
     Route: 048
     Dates: start: 20240625
  3. ADVIL 6 PLUS [Concomitant]
  4. AMINOSALICYLATE CALCIUM [Concomitant]
     Active Substance: AMINOSALICYLATE CALCIUM
  5. VITAMINS NOS [Concomitant]
     Active Substance: VITAMINS
  6. CAMCEVI [Concomitant]
     Active Substance: LEUPROLIDE MESYLATE

REACTIONS (6)
  - Death [Fatal]
  - Stent placement [Unknown]
  - Ureteral stent removal [Unknown]
  - Alopecia universalis [Unknown]
  - Hot flush [Recovering/Resolving]
  - Malaise [Recovering/Resolving]

NARRATIVE: CASE EVENT DATE: 20240625
